FAERS Safety Report 12969951 (Version 2)
Quarter: 2017Q1

REPORT INFORMATION
  Report Type: Report from Study
  Country: None (occurrence: US)
  Receive Date: 20161123
  Receipt Date: 20170114
  Transmission Date: 20170428
  Serious: Yes (Other)
  Sender: FDA-Public Use
  Company Number: US-ABBVIE-16K-163-1785451-00

PATIENT
  Sex: Female

DRUGS (1)
  1. HUMIRA [Suspect]
     Active Substance: ADALIMUMAB
     Indication: COLITIS ULCERATIVE
     Route: 058
     Dates: start: 20160629

REACTIONS (8)
  - Concussion [Unknown]
  - Diarrhoea [Unknown]
  - Abdominal pain upper [Unknown]
  - Syncope [Unknown]
  - Dehydration [Unknown]
  - Loss of consciousness [Unknown]
  - Vomiting [Recovered/Resolved]
  - Gastroenteritis viral [Unknown]

NARRATIVE: CASE EVENT DATE: 2016
